FAERS Safety Report 8581819-2 (Version None)
Quarter: 2012Q3

REPORT INFORMATION
  Report Type: 
  Country: None (occurrence: None)
  Receive Date: 20120809
  Receipt Date: 20120726
  Transmission Date: 20120928
  Serious: No
  Sender: FDA-Public Use
  Company Number: US-ASTRAZENECA-2012SE53194

PATIENT
  Sex: Female

DRUGS (2)
  1. NEXIUM [Suspect]
     Indication: GASTROOESOPHAGEAL REFLUX DISEASE
     Dosage: DAILY
     Route: 048
     Dates: start: 20110101, end: 20110101
  2. NEXIUM [Suspect]
     Indication: OESOPHAGITIS
     Dosage: DAILY
     Route: 048
     Dates: start: 20110101, end: 20110101

REACTIONS (2)
  - NAUSEA [None]
  - OFF LABEL USE [None]
